FAERS Safety Report 9710269 (Version 1)
Quarter: 2013Q4

REPORT INFORMATION
  Report Type: Spontaneous
  Country: US (occurrence: US)
  Receive Date: 20131126
  Receipt Date: 20131126
  Transmission Date: 20140711
  Serious: No
  Sender: FDA-Public Use
  Company Number: US-BRISTOL-MYERS SQUIBB COMPANY-18749358

PATIENT
  Sex: Female

DRUGS (9)
  1. BYETTA [Suspect]
     Dosage: INCREASED TO 10MCG FOR 4 MONTHS
     Dates: start: 2012
  2. METFORMIN [Concomitant]
  3. NOVOLOG [Concomitant]
  4. INSULIN [Concomitant]
  5. LEVEMIR [Concomitant]
  6. AMLODIPINE [Concomitant]
  7. GABAPENTIN [Concomitant]
  8. LOVASTATIN [Concomitant]
  9. PRAVASTATIN SODIUM [Concomitant]

REACTIONS (1)
  - Abdominal pain upper [Recovered/Resolved]
